FAERS Safety Report 7533022-2 (Version None)
Quarter: 2011Q2

REPORT INFORMATION
  Report Type: 
  Country: None (occurrence: None)
  Receive Date: 20110608
  Receipt Date: 20110526
  Transmission Date: 20111010
  Serious: Yes (Hospitalization)
  Sender: FDA-Public Use
  Company Number: US-CELGENEUS-163-21880-11053555

PATIENT
  Sex: Male

DRUGS (10)
  1. SYMBICORT [Concomitant]
     Route: 065
  2. AVINZA [Concomitant]
     Route: 065
  3. FLOMAX [Concomitant]
     Route: 065
  4. TANDEM [Concomitant]
     Route: 065
  5. GLUCOPHAGE [Concomitant]
     Route: 065
  6. TIMOPTIC [Concomitant]
     Route: 065
  7. REVLIMID [Suspect]
     Dosage: 25 MILLIGRAM
     Route: 048
     Dates: start: 20100128, end: 20100101
  8. MAGNESIUM OXIDE [Concomitant]
     Route: 065
  9. KLOR-CON [Concomitant]
     Route: 065
  10. REVLIMID [Suspect]
     Dosage: 10 MILLIGRAM
     Route: 048
     Dates: start: 20101101, end: 20110101

REACTIONS (1)
  - BACK DISORDER [None]
